FAERS Safety Report 7488826-1 (Version None)
Quarter: 2011Q2

REPORT INFORMATION
  Report Type: 
  Country: None (occurrence: None)
  Receive Date: 20110518
  Receipt Date: 20110506
  Transmission Date: 20111010
  Serious: Yes (Hospitalization, Other)
  Sender: FDA-Public Use
  Company Number: US-PFIZER INC-US-WYE-H12317209

PATIENT
  Sex: Female
  Weight: 60.9 kg

DRUGS (11)
  1. DIPHENHYDRAMINE HCL [Suspect]
     Dosage: UNK
     Dates: start: 20090918, end: 20090923
  2. ACETYLSALICYLIC ACID [Concomitant]
  3. LEXAPRO [Concomitant]
     Indication: DEPRESSION
     Dosage: 10 MG, 1X/DAY
     Route: 048
     Dates: start: 20080701
  4. MULTIPLE VITAMINS [Concomitant]
     Dosage: UNK
     Route: 048
     Dates: start: 20050205
  5. LOVAZA [Concomitant]
     Indication: ROUTINE HEALTH MAINTENANCE
     Dosage: UNK
     Route: 048
     Dates: start: 20050101
  6. BAZEDOXIFENE AND BAZEDOXIFENE ACETATE [Suspect]
     Indication: OSTEOPOROSIS
  7. CALTRATE + D [Concomitant]
     Indication: ROUTINE HEALTH MAINTENANCE
     Dosage: UNK
     Route: 048
     Dates: start: 20090820
  8. BAZEDOXIFENE AND BAZEDOXIFENE ACETATE [Suspect]
     Indication: ENDOMETRIAL HYPERPLASIA
     Dosage: 20 MG, 1X/DAY
     Route: 048
     Dates: start: 20090820
  9. BAZEDOXIFENE AND BAZEDOXIFENE ACETATE [Suspect]
     Indication: PROPHYLAXIS
  10. MEDROL [Suspect]
     Indication: DERMATITIS CONTACT
     Dosage: UNK
     Dates: start: 20090919, end: 20091005
  11. ACTONEL [Concomitant]
     Indication: OSTEOPOROSIS
     Dosage: 35 MG, WEEKLY
     Route: 048
     Dates: start: 20060201

REACTIONS (2)
  - BASAL CELL CARCINOMA [None]
  - DEHYDRATION [None]
